FAERS Safety Report 8848865 (Version 1)
Quarter: 2012Q4

REPORT INFORMATION
  Report Type: Spontaneous
  Country: US (occurrence: None)
  Receive Date: 20121017
  Receipt Date: 20121017
  Transmission Date: 20130627
  Serious: Yes (Life-Threatening)
  Sender: FDA-Public Use
  Company Number: None

PATIENT
  Age: 87 Year
  Sex: Male

DRUGS (1)
  1. FORTEO 20MCG LILLY [Suspect]
     Indication: OSTEOPOROSIS
     Route: 058
     Dates: start: 20120910, end: 20120925

REACTIONS (1)
  - Angina pectoris [None]
